FAERS Safety Report 9650314 (Version 2)
Quarter: 2013Q4

REPORT INFORMATION
  Report Type: Spontaneous
  Country: US (occurrence: US)
  Receive Date: 20131028
  Receipt Date: 20131028
  Transmission Date: 20140711
  Serious: Yes (Death, Other)
  Sender: FDA-Public Use
  Company Number: US-NAPPMUNDI-USA-2012-0091868

PATIENT
  Age: 19 Year
  Sex: Female

DRUGS (3)
  1. OXYCONTIN (NDA 22-272) [Suspect]
     Indication: DRUG ABUSE
  2. HEROIN [Suspect]
     Indication: DRUG ABUSE
  3. ALPRAZOLAM [Suspect]
     Indication: DRUG ABUSE

REACTIONS (3)
  - Accidental overdose [Fatal]
  - Polysubstance dependence [Unknown]
  - Substance abuse [Unknown]
